FAERS Safety Report 24191358 (Version 2)
Quarter: 2024Q3

REPORT INFORMATION
  Report Type: Spontaneous
  Country: IE (occurrence: IE)
  Receive Date: 20240808
  Receipt Date: 20240813
  Transmission Date: 20241017
  Serious: Yes (Life-Threatening, Disabling)
  Sender: Hugel Aesthetics
  Company Number: IE-Hugel Aesthetics-2160194

PATIENT
  Age: 35 Year
  Sex: Female

DRUGS (1)
  1. BOTULINUM TOXIN TYPE A [Suspect]
     Active Substance: BOTULINUM TOXIN TYPE A

REACTIONS (3)
  - Brow ptosis [Unknown]
  - Headache [Unknown]
  - Necrosis [Not Recovered/Not Resolved]
